FAERS Safety Report 13707816 (Version 1)
Quarter: 2017Q2

REPORT INFORMATION
  Report Type: Spontaneous
  Country: TR (occurrence: TR)
  Receive Date: 20170630
  Receipt Date: 20170630
  Transmission Date: 20170830
  Serious: Yes (Hospitalization)
  Sender: FDA-Public Use
  Company Number: TR-EDENBRIDGE PHARMACEUTICALS, LLC-TR-2017EDE000078

PATIENT
  Age: 16 Year
  Sex: Male

DRUGS (1)
  1. PREDNISOLONE SODIUM PHOSPHATE. [Suspect]
     Active Substance: PREDNISOLONE SODIUM PHOSPHATE
     Indication: CHRONIC GRANULOMATOUS DISEASE
     Dosage: 2 MG/KG, QD
     Route: 048

REACTIONS (1)
  - Interstitial lung disease [Recovering/Resolving]
